FAERS Safety Report 11798256 (Version 4)
Quarter: 2016Q2

REPORT INFORMATION
  Report Type: Report from Study
  Country: AT (occurrence: AT)
  Receive Date: 20151203
  Receipt Date: 20160601
  Transmission Date: 20160815
  Serious: Yes (Death, Hospitalization, Other)
  Sender: FDA-Public Use
  Company Number: AT-ASTRAZENECA-2015SF18956

PATIENT
  Age: 75 Year
  Sex: Female
  Weight: 56 kg

DRUGS (8)
  1. TAGRISSO [Suspect]
     Active Substance: OSIMERTINIB
     Indication: TYROSINE KINASE MUTATION
     Route: 048
     Dates: start: 20151102, end: 20151213
  2. NOVALGIN [Concomitant]
     Active Substance: METAMIZOLE SODIUM
     Dosage: 2-2-2
  3. NEURONTIN [Concomitant]
     Active Substance: GABAPENTIN
     Dosage: 300 MG, 2-2-2
  4. CYCLOPENTOL [Concomitant]
     Dosage: 2X1
  5. TAGRISSO [Suspect]
     Active Substance: OSIMERTINIB
     Indication: TYROSINE KINASE MUTATION
     Route: 048
  6. YELLOW EYE DROPD [Concomitant]
     Dosage: 2X1
  7. BETNESOL [Concomitant]
     Active Substance: BETAMETHASONE
     Dosage: 8X1
  8. PANTOLOC [Concomitant]
     Active Substance: PANTOPRAZOLE SODIUM
     Indication: GASTRITIS

REACTIONS (12)
  - Hydrothorax [Fatal]
  - Cardiopulmonary failure [Fatal]
  - Atrial fibrillation [Unknown]
  - Uveitis [Unknown]
  - Metastases to bone [Unknown]
  - Metastases to lymph nodes [Unknown]
  - Blindness [Not Recovered/Not Resolved]
  - Pulmonary oedema [Fatal]
  - Osteoarthritis [Unknown]
  - Neoplasm progression [Fatal]
  - Diffuse alveolar damage [Unknown]
  - Endophthalmitis [Unknown]

NARRATIVE: CASE EVENT DATE: 201511
